FAERS Safety Report 21961693 (Version 7)
Quarter: 2025Q2

REPORT INFORMATION
  Report Type: Spontaneous
  Country: US (occurrence: US)
  Receive Date: 20230207
  Receipt Date: 20250417
  Transmission Date: 20250716
  Serious: Yes (Other)
  Sender: BRISTOL MYERS SQUIBB
  Company Number: US-BRISTOL-MYERS SQUIBB COMPANY-2023-017735

PATIENT
  Age: 59 Year
  Sex: Female

DRUGS (7)
  1. ORENCIA [Suspect]
     Active Substance: ABATACEPT
     Indication: Rheumatoid arthritis
     Dosage: 125MG/ML
     Route: 058
     Dates: start: 202206
  2. ORENCIA [Suspect]
     Active Substance: ABATACEPT
     Dosage: 125MG/ML
     Route: 058
  3. ORENCIA [Suspect]
     Active Substance: ABATACEPT
     Dosage: 125MG/ML
     Route: 058
     Dates: start: 202206
  4. ORENCIA [Suspect]
     Active Substance: ABATACEPT
     Dosage: 125MG/ML
     Route: 058
     Dates: start: 202206
  5. ORENCIA [Suspect]
     Active Substance: ABATACEPT
     Dosage: 125MG/ML
     Route: 058
     Dates: start: 202206
  6. ORENCIA [Suspect]
     Active Substance: ABATACEPT
     Dosage: 125MG/ML UNDER THE SKIN
     Route: 058
     Dates: start: 202206
  7. ORENCIA [Suspect]
     Active Substance: ABATACEPT
     Route: 058

REACTIONS (6)
  - Joint swelling [Unknown]
  - Arthralgia [Unknown]
  - Tendonitis [Unknown]
  - Trigger finger [Unknown]
  - Tuberculosis [Unknown]
  - Arthropathy [Unknown]

NARRATIVE: CASE EVENT DATE: 20230101
